FAERS Safety Report 5202001-2 (Version None)
Quarter: 2007Q1

REPORT INFORMATION
  Report Type: 
  Country: None (occurrence: None)
  Receive Date: 20070104
  Receipt Date: 20070104
  Transmission Date: 20070707
  Serious: Yes (Hospitalization)
  Sender: FDA-Public Use
  Company Number: None

PATIENT
  Age: 52 Year
  Sex: Female
  Weight: 99.7913 kg

DRUGS (1)
  1. ZICAM [Suspect]
     Indication: NASOPHARYNGITIS
     Dosage: ONE TABLET   EVERY 3 HOURS  OTHER  (DURATION: 4 TABLETS)
     Route: 050
     Dates: start: 20061217, end: 20061218

REACTIONS (2)
  - RASH [None]
  - STATUS ASTHMATICUS [None]
